FAERS Safety Report 18425433 (Version 1)
Quarter: 2020Q4

REPORT INFORMATION
  Report Type: Spontaneous
  Country: US (occurrence: US)
  Receive Date: 20201026
  Receipt Date: 20201026
  Transmission Date: 20210114
  Serious: No
  Sender: FDA-Public Use
  Company Number: US-ASTRAZENECA-2020SF33371

PATIENT
  Sex: Male
  Weight: 99.8 kg

DRUGS (2)
  1. BYDUREON BCISE [Suspect]
     Active Substance: EXENATIDE
     Indication: INSURANCE ISSUE
     Route: 065
     Dates: start: 202008
  2. INSULIN [Concomitant]
     Active Substance: INSULIN NOS
     Indication: BLOOD GLUCOSE NORMAL
     Dosage: EVERY DAY
     Route: 065

REACTIONS (2)
  - Therapeutic product effect delayed [Unknown]
  - Blood glucose abnormal [Unknown]
